FAERS Safety Report 9538465 (Version 1)
Quarter: 2013Q2

REPORT INFORMATION
  Report Type: Spontaneous
  Country: US (occurrence: None)
  Receive Date: 20130507
  Receipt Date: 20130507
  Transmission Date: 20140414
  Serious: No
  Sender: FDA-Public Use
  Company Number: PHEH2013US002792

PATIENT
  Age: 44 Year
  Sex: Male

DRUGS (2)
  1. AFINITOR (RAD) UNKNOWN [Suspect]
     Indication: RENAL CELL CARCINOMA
     Dates: start: 201301
  2. AFINITOR (RAD) UNKNOWN [Suspect]
     Indication: METASTASES TO LYMPH NODES
     Dates: start: 201301

REACTIONS (1)
  - Diarrhoea [None]
